FAERS Safety Report 6266974-1 (Version None)
Quarter: 2009Q3

REPORT INFORMATION
  Report Type: 
  Country: None (occurrence: None)
  Receive Date: 20090714
  Receipt Date: 20090701
  Transmission Date: 20100115
  Serious: Yes (Other)
  Sender: FDA-Public Use
  Company Number: DE-ROCHE-643012

PATIENT
  Age: 32 Year
  Sex: Female

DRUGS (12)
  1. PEGASYS [Suspect]
     Indication: HEPATITIS C
     Route: 030
     Dates: start: 20081217, end: 20090211
  2. ZYPREXA [Interacting]
     Indication: DRUG USE FOR UNKNOWN INDICATION
     Route: 048
     Dates: start: 20090107, end: 20090107
  3. ZYPREXA [Interacting]
     Route: 048
     Dates: start: 20090108, end: 20090111
  4. ZYPREXA [Interacting]
     Route: 048
     Dates: start: 20090112, end: 20090115
  5. ZYPREXA [Interacting]
     Route: 048
     Dates: start: 20090116, end: 20090120
  6. COPEGUS [Concomitant]
     Indication: HEPATITIS C
     Dosage: FOR A LONG TIME
     Route: 048
  7. SUBUTEX [Concomitant]
     Route: 048
     Dates: start: 20080801, end: 20090119
  8. SUBUTEX [Concomitant]
     Route: 048
     Dates: start: 20090120, end: 20090201
  9. SUBUTEX [Concomitant]
     Route: 048
     Dates: start: 20090202
  10. CETIRIZINE [Concomitant]
     Route: 048
     Dates: start: 20081212, end: 20090123
  11. NOVAMINSULFON [Concomitant]
     Route: 048
     Dates: start: 20090114, end: 20090116
  12. NOVAMINSULFON [Concomitant]
     Route: 048
     Dates: start: 20090117, end: 20090120

REACTIONS (1)
  - AKATHISIA [None]
